FAERS Safety Report 4365845-5 (Version None)
Quarter: 2004Q2

REPORT INFORMATION
  Report Type: 
  Country: None (occurrence: None)
  Receive Date: 20040527
  Receipt Date: 20040520
  Transmission Date: 20050107
  Serious: Yes (Hospitalization)
  Sender: FDA-Public Use
  Company Number: 200413970US

PATIENT
  Sex: Female

DRUGS (16)
  1. ARAVA [Suspect]
     Dates: start: 20001001, end: 20010301
  2. METHOTREXATE [Concomitant]
     Dates: end: 20010301
  3. KLOR-CON [Concomitant]
  4. LASIX [Concomitant]
  5. AVANDIA [Concomitant]
  6. PREMPRO [Concomitant]
     Dosage: DOSE: 0.625/2.5
  7. HUMULIN N [Concomitant]
     Dosage: DOSE UNIT: UNITS
  8. DURICEF [Concomitant]
  9. FOLIC ACID [Concomitant]
  10. DAYPRO [Concomitant]
  11. AMITRIPTYLINE HCL [Concomitant]
  12. TUMS [Concomitant]
     Dosage: DOSE: 5-6
  13. FERROUS SULFATE TAB [Concomitant]
  14. PERCOCET [Concomitant]
     Dosage: DOSE: Q4-6HPRN
  15. ULTRAM [Concomitant]
     Dosage: DOSE: 50MG Q4-6HPRN
  16. HUMULIN R [Concomitant]
     Dosage: DOSE: SLIDING SCALE

REACTIONS (21)
  - ABDOMINAL PAIN [None]
  - ANAEMIA [None]
  - ASCITES [None]
  - BIOPSY LIVER ABNORMAL [None]
  - CARBOHYDRATE ANTIGEN 125 INCREASED [None]
  - CELLULITIS [None]
  - ENDOSCOPY UPPER GASTROINTESTINAL TRACT ABNORMAL [None]
  - ERYTHEMA [None]
  - HEPATIC FIBROSIS [None]
  - HEPATOMEGALY [None]
  - LIVER FUNCTION TEST ABNORMAL [None]
  - OEDEMA [None]
  - PAIN [None]
  - PAIN IN EXTREMITY [None]
  - PNEUMONIA [None]
  - POLLAKIURIA [None]
  - SPLENOMEGALY [None]
  - THROMBOCYTOPENIA [None]
  - ULTRASOUND DOPPLER ABNORMAL [None]
  - VARICOSE VEIN [None]
  - VOMITING [None]
